FAERS Safety Report 8984561 (Version 6)
Quarter: 2014Q1

REPORT INFORMATION
  Report Type: Spontaneous
  Country: US (occurrence: US)
  Receive Date: 20121226
  Receipt Date: 20140304
  Transmission Date: 20141002
  Serious: Yes (Other)
  Sender: FDA-Public Use
  Company Number: US-ASTRAZENECA-2012SE94710

PATIENT
  Age: 74 Year
  Sex: Male

DRUGS (27)
  1. NEXIUM [Suspect]
     Indication: DYSPEPSIA
     Route: 048
     Dates: start: 20030710, end: 20100219
  2. NEXIUM [Suspect]
     Indication: DYSPEPSIA
     Route: 048
     Dates: start: 20030722
  3. NEXIUM [Suspect]
     Indication: DYSPEPSIA
     Route: 048
     Dates: start: 2007, end: 200907
  4. NEXIUM [Suspect]
     Indication: DYSPEPSIA
     Route: 048
     Dates: start: 20070113
  5. CELEBREX [Concomitant]
     Dates: start: 20070113
  6. CELEBREX [Concomitant]
     Dates: start: 20051101
  7. PREDNISONE [Concomitant]
     Dates: start: 20070111
  8. PREDNISONE [Concomitant]
     Dates: start: 20050628
  9. AMOXICILLIN [Concomitant]
     Dates: start: 20070312
  10. IBUPROFEN [Concomitant]
     Dates: start: 20070312
  11. METHYLPREDNISOLONE [Concomitant]
     Dates: start: 20070702
  12. CEPHALEXIN [Concomitant]
     Dates: start: 20071004
  13. WARFARIN SODIUM [Concomitant]
     Dates: start: 20080612
  14. HYDROCODONE-APAP [Concomitant]
     Dosage: 7.5-500
     Dates: start: 20080612
  15. TUMS/CALCIUM AND D [Concomitant]
  16. ALKA-SELTZER/ASPIRIN [Concomitant]
  17. MILK OF MAGNESIA [Concomitant]
  18. GLUCOSAMINE/CHONDROTIN [Concomitant]
  19. OMEGA 3 [Concomitant]
  20. LIVALO [Concomitant]
  21. FAMOTIDINE [Concomitant]
  22. RAMIPRIL [Concomitant]
  23. PLAVIX [Concomitant]
  24. ACTONEL [Concomitant]
     Route: 048
     Dates: start: 20090810
  25. CALCIUM [Concomitant]
     Dates: start: 20101213
  26. CALCIUM/VITAMIN D/MINERALS [Concomitant]
     Dosage: 600 -200 MG DAILY
  27. ZOCOR [Concomitant]

REACTIONS (23)
  - Spinal fracture [Unknown]
  - Spinal compression fracture [Unknown]
  - Musculoskeletal discomfort [Unknown]
  - Arthropathy [Unknown]
  - Fall [Unknown]
  - Synovitis [Unknown]
  - Cervical radiculopathy [Unknown]
  - Osteoporosis [Unknown]
  - Bone disorder [Unknown]
  - Intervertebral disc degeneration [Unknown]
  - Vitamin D deficiency [Unknown]
  - Multiple fractures [Unknown]
  - Arthritis [Unknown]
  - Glaucoma [Unknown]
  - Nervous system disorder [Unknown]
  - Osteopenia [Unknown]
  - Rheumatoid arthritis [Unknown]
  - Joint ankylosis [Unknown]
  - Osteoarthritis [Unknown]
  - Cervical spinal stenosis [Unknown]
  - Intervertebral disc protrusion [Unknown]
  - Carpal tunnel syndrome [Unknown]
  - Lumbar spinal stenosis [Unknown]
